FAERS Safety Report 6053740-5 (Version None)
Quarter: 2009Q1

REPORT INFORMATION
  Report Type: 
  Country: None (occurrence: None)
  Receive Date: 20090127
  Receipt Date: 20080922
  Transmission Date: 20090719
  Serious: No
  Sender: FDA-Public Use
  Company Number: US-TEVA-177720USA

PATIENT
  Age: 33 Year
  Sex: Male

DRUGS (1)
  1. COPAXONE [Suspect]
     Indication: MULTIPLE SCLEROSIS
     Route: 058

REACTIONS (4)
  - CHEST PAIN [None]
  - DYSPNOEA [None]
  - INJECTION SITE PRURITUS [None]
  - PALPITATIONS [None]
